FAERS Safety Report 9483894 (Version 1)
Quarter: 2013Q3

REPORT INFORMATION
  Report Type: Spontaneous
  Country: CA (occurrence: CA)
  Receive Date: 20130828
  Receipt Date: 20130828
  Transmission Date: 20140515
  Serious: Yes (Hospitalization)
  Sender: FDA-Public Use
  Company Number: CA-AMGEN-KDL348385

PATIENT
  Age: 54 Year
  Sex: Male

DRUGS (2)
  1. ENBREL [Suspect]
     Indication: PSORIASIS
     Dosage: UNK UNK, 2 TIMES/WK
     Route: 065
     Dates: start: 20071205
  2. METHOTREXATE [Concomitant]

REACTIONS (4)
  - Immune system disorder [Unknown]
  - Splenomegaly [Unknown]
  - Malaise [Unknown]
  - Platelet count decreased [Unknown]
